FAERS Safety Report 14868969 (Version 1)
Quarter: 2018Q2

REPORT INFORMATION
  Report Type: Spontaneous
  Country: US (occurrence: US)
  Receive Date: 20180423
  Receipt Date: 20180423
  Transmission Date: 20180711
  Serious: Yes (Hospitalization)
  Sender: FDA-Public Use
  Company Number: None

PATIENT
  Age: 54 Year
  Sex: Male

DRUGS (1)
  1. ENBREL [Suspect]
     Active Substance: ETANERCEPT
     Indication: RHEUMATOID ARTHRITIS
     Route: 058
     Dates: start: 20150918

REACTIONS (9)
  - Swelling [None]
  - Chest pain [None]
  - Drug dose omission [None]
  - Malaise [None]
  - Pain in extremity [None]
  - Depression [None]
  - Condition aggravated [None]
  - Stress [None]
  - Back pain [None]

NARRATIVE: CASE EVENT DATE: 201804
